FAERS Safety Report 5112611-9 (Version None)
Quarter: 2006Q3

REPORT INFORMATION
  Report Type: 
  Country: None (occurrence: None)
  Receive Date: 20060918
  Receipt Date: 20060918
  Transmission Date: 20061208
  Serious: No
  Sender: FDA-Public Use
  Company Number: None

PATIENT
  Age: 57 Year
  Sex: Female

DRUGS (12)
  1. MOBIC [Suspect]
     Dosage: SEE IMAGE
  2. LIPITOR [Concomitant]
  3. SYNTHROID [Concomitant]
  4. METOPROLOL [Concomitant]
  5. DIOVAN HYDROCHLOROTHIAZIDE [Concomitant]
  6. GLUCOSAMINE CONDROTION [Concomitant]
  7. GLUCOPHAGE [Concomitant]
  8. AVANDIA [Concomitant]
  9. MULTI-VITAMIN [Concomitant]
  10. VITAMIN E [Concomitant]
  11. ASCORBIC ACID [Concomitant]
  12. ACYCLOVIR [Concomitant]

REACTIONS (11)
  - CHOLESTASIS [None]
  - DECREASED APPETITE [None]
  - GLOMERULONEPHRITIS MINIMAL LESION [None]
  - HAEMANGIOMA OF LIVER [None]
  - HAEMODIALYSIS [None]
  - HEPATIC TRAUMA [None]
  - INFLUENZA LIKE ILLNESS [None]
  - NAUSEA [None]
  - NEPHRITIS INTERSTITIAL [None]
  - PAIN [None]
  - RENAL FAILURE ACUTE [None]
